FAERS Safety Report 4353226-X (Version None)
Quarter: 2004Q2

REPORT INFORMATION
  Report Type: 
  Country: None (occurrence: None)
  Receive Date: 20040505
  Receipt Date: 20040414
  Transmission Date: 20050107
  Serious: Yes (Death, Other)
  Sender: FDA-Public Use
  Company Number: PHBS2004JP05110

PATIENT
  Age: 53 Year
  Sex: Female

DRUGS (9)
  1. CYCLOSPORINE [Suspect]
     Indication: STEM CELL TRANSPLANT
     Dosage: 3 MG/KG/D
     Route: 065
  2. CYCLOSPORINE [Suspect]
     Dosage: 50 MG/D
     Route: 065
  3. CYCLOSPORINE [Suspect]
     Dosage: 200 MG/D
     Route: 065
  4. PREDNISOLONE [Suspect]
     Indication: GRAFT VERSUS HOST DISEASE
     Route: 065
  5. FLUDARABINE PHOSPHATE [Concomitant]
     Dosage: 30 MG/M2/D
     Route: 042
  6. BUSULFAN [Concomitant]
     Dosage: 4 MG/KG/D
     Route: 048
  7. METHOTREXATE [Concomitant]
     Dosage: 10 MG/M2/D
     Route: 065
  8. METHOTREXATE [Concomitant]
     Dosage: 7 MG/M2/D
     Route: 065
  9. METHOTREXATE [Concomitant]
     Dosage: 7 MG/M2/D
     Route: 065

REACTIONS (9)
  - BRAIN OEDEMA [None]
  - GRAFT VERSUS HOST DISEASE [None]
  - HEPATIC FUNCTION ABNORMAL [None]
  - MALIGNANT NEOPLASM PROGRESSION [None]
  - METASTASES TO BONE [None]
  - METASTASES TO CENTRAL NERVOUS SYSTEM [None]
  - METASTASES TO LIVER [None]
  - METASTASES TO SKIN [None]
  - SARCOMA [None]
